FAERS Safety Report 8142647-5 (Version None)
Quarter: 2012Q1

REPORT INFORMATION
  Report Type: 
  Country: None (occurrence: None)
  Receive Date: 20120216
  Receipt Date: 20120208
  Transmission Date: 20120608
  Serious: Yes (Death, Congenital Anomaly)
  Sender: FDA-Public Use
  Company Number: DK-ABBOTT-12P-044-0902934-00

PATIENT

DRUGS (1)
  1. VALPROIC ACID [Suspect]
     Indication: MATERNAL EXPOSURE TIMING UNSPECIFIED
     Route: 064

REACTIONS (3)
  - STILLBIRTH [None]
  - PULMONARY HYPOPLASIA [None]
  - FOETAL EXPOSURE DURING PREGNANCY [None]
